FAERS Safety Report 23369279 (Version 1)
Quarter: 2024Q1

REPORT INFORMATION
  Report Type: Spontaneous
  Country: US (occurrence: US)
  Receive Date: 20240105
  Receipt Date: 20240105
  Transmission Date: 20240410
  Serious: Yes (Hospitalization, Other)
  Sender: FDA-Public Use
  Company Number: US-HIKMA PHARMACEUTICALS USA INC.-US-H14001-23-68475

PATIENT
  Age: 86 Year
  Weight: 77 kg

DRUGS (15)
  1. CAPTOPRIL [Suspect]
     Active Substance: CAPTOPRIL
     Indication: Product used for unknown indication
     Dosage: 50 MILLIGRAM, QD
     Route: 048
     Dates: start: 2015
  2. DOXAZOSIN MESYLATE [Suspect]
     Active Substance: DOXAZOSIN MESYLATE
     Indication: Product used for unknown indication
     Dosage: 8 MILLIGRAM, QD
     Route: 048
     Dates: start: 2015
  3. ENZALUTAMIDE [Suspect]
     Active Substance: ENZALUTAMIDE
     Indication: Prostate cancer metastatic
     Dosage: 160 MILLIGRAM, QD
     Route: 048
     Dates: start: 20230529, end: 20231212
  4. HYDROCHLOROTHIAZIDE [Suspect]
     Active Substance: HYDROCHLOROTHIAZIDE
     Indication: Product used for unknown indication
     Dosage: 25 MILLIGRAM, QD
     Route: 048
     Dates: start: 2015
  5. LERCANIDIPINE [Suspect]
     Active Substance: LERCANIDIPINE
     Indication: Product used for unknown indication
     Dosage: 20 MILLIGRAM, QD
     Route: 048
     Dates: start: 2015
  6. BISOPROLOL [Concomitant]
     Active Substance: BISOPROLOL\BISOPROLOL FUMARATE
     Indication: Product used for unknown indication
     Dosage: UNK
     Route: 048
     Dates: start: 2015
  7. FLUIMUCIL [Concomitant]
     Active Substance: ACETYLCYSTEINE
     Indication: Product used for unknown indication
     Dosage: UNK
     Route: 048
     Dates: start: 20231204
  8. LACTULOSE [Concomitant]
     Active Substance: LACTULOSE
     Indication: Product used for unknown indication
     Dosage: UNK
     Route: 048
     Dates: start: 20230831
  9. EDOXABAN TOSYLATE [Concomitant]
     Active Substance: EDOXABAN TOSYLATE
     Indication: Product used for unknown indication
     Dosage: UNK
     Route: 048
     Dates: start: 2015
  10. OMEPRAZOLE [Concomitant]
     Active Substance: OMEPRAZOLE
     Indication: Product used for unknown indication
     Dosage: UNK
     Route: 048
     Dates: start: 2015
  11. ACETAMINOPHEN [Concomitant]
     Active Substance: ACETAMINOPHEN
     Indication: Product used for unknown indication
     Dosage: UNK
     Route: 048
     Dates: start: 2010
  12. PREDNISONE [Concomitant]
     Active Substance: PREDNISONE
     Indication: Product used for unknown indication
     Dosage: UNK
     Route: 048
     Dates: start: 2010
  13. FUROSEMIDE [Concomitant]
     Active Substance: FUROSEMIDE
     Indication: Product used for unknown indication
     Dosage: UNK
     Route: 048
     Dates: start: 2005
  14. SIMVASTATIN [Concomitant]
     Active Substance: SIMVASTATIN
     Indication: Product used for unknown indication
     Dosage: UNK
     Route: 048
     Dates: start: 2015
  15. TAMSULOSIN [Concomitant]
     Active Substance: TAMSULOSIN
     Indication: Product used for unknown indication
     Dosage: UNK
     Route: 048
     Dates: start: 2007

REACTIONS (4)
  - Upper respiratory tract infection [Not Recovered/Not Resolved]
  - Presyncope [Unknown]
  - Asthenia [Unknown]
  - Hypotension [Unknown]

NARRATIVE: CASE EVENT DATE: 20231212
